FAERS Safety Report 8572901 (Version 2)
Quarter: 2014Q1

REPORT INFORMATION
  Report Type: Report from Study
  Country: BR (occurrence: BR)
  Receive Date: 20120522
  Receipt Date: 20140123
  Transmission Date: 20141002
  Serious: Yes (Hospitalization, Other)
  Sender: FDA-Public Use
  Company Number: PHHY2012BR042295

PATIENT
  Age: 48 Year
  Sex: Female
  Weight: 73 kg

DRUGS (9)
  1. TRILEPTAL [Suspect]
     Indication: CONVULSION
     Dosage: 1 DF, Q12H (1 TABLET IN THE MORNING AND 1 TABLET AT NIGHT)
     Route: 048
     Dates: start: 201009
  2. TRILEPTAL [Suspect]
     Dosage: 1 DF, Q12H (1 TABLET IN THE MORNING AND 1 TABLET AT NIGHT)
     Route: 048
  3. TRILEPTAL [Suspect]
     Dosage: UNK UKN, UNK
     Route: 048
     Dates: start: 201311
  4. SIMVASTATIN [Concomitant]
     Indication: BLOOD CHOLESTEROL INCREASED
     Dosage: 1 DF, QD (AT NIGHT)
     Route: 048
  5. RIVOTRIL [Concomitant]
     Indication: INSOMNIA
     Dosage: 0.25 MG, AT NIGHT
     Route: 048
     Dates: start: 2012, end: 2012
  6. RIVOTRIL [Concomitant]
     Indication: AGITATION
  7. BETASERC [Concomitant]
     Indication: DIZZINESS
     Dosage: 1 DF, A DAY
     Route: 048
  8. HIDANTAL [Concomitant]
     Indication: CONVULSION
     Dosage: UNK UKN, UNK
     Route: 042
  9. CLONAZEPAM [Concomitant]
     Indication: AGITATION
     Dosage: 2 MG, UNK
     Dates: start: 201311

REACTIONS (3)
  - Convulsion [Unknown]
  - Sciatica [Unknown]
  - Headache [Unknown]
